FAERS Safety Report 7305432-X (Version None)
Quarter: 2011Q1

REPORT INFORMATION
  Report Type: 
  Country: None (occurrence: None)
  Receive Date: 20110222
  Receipt Date: 20110217
  Transmission Date: 20110831
  Serious: Yes (Other)
  Sender: FDA-Public Use
  Company Number: EE-PFIZER INC-2011036148

PATIENT
  Age: 79 Year
  Sex: Female
  Weight: 79 kg

DRUGS (12)
  1. TEOTARD [Concomitant]
  2. ENALAPRIL [Concomitant]
  3. CITALOPRAM [Concomitant]
  4. ATROVENT [Concomitant]
  5. MICARDIS [Concomitant]
  6. AMITRIPTYLINE [Concomitant]
  7. CONTROLOC [Concomitant]
  8. SYMBICORT [Concomitant]
  9. TORASEMID [Concomitant]
  10. CARVEDILOL [Concomitant]
  11. LUSOPRESS [Concomitant]
  12. NEURONTIN [Suspect]
     Indication: DIABETIC NEUROPATHY
     Dosage: 300 MG, 1X/DAY
     Route: 048
     Dates: start: 20110124, end: 20110211

REACTIONS (3)
  - BLOOD CREATINE INCREASED [None]
  - MUSCULAR WEAKNESS [None]
  - HAEMOGLOBIN DECREASED [None]
